FAERS Safety Report 8362080 (Version 6)
Quarter: 2012Q4

REPORT INFORMATION
  Report Type: 
  Country: US (occurrence: US)
  Receive Date: 20120130
  Receipt Date: 20121102
  Transmission Date: 20130627
  Serious: Yes (Hospitalization, Other)
  Sender: FDA-Public Use
  Company Number: US-009507513-1201USA03708

PATIENT

DRUGS (12)
  1. FOSAMAX [Suspect]
     Indication: OSTEOPOROSIS POSTMENOPAUSAL
     Dosage: UNK
     Route: 048
     Dates: start: 1999
  2. FOSAMAX [Suspect]
     Indication: OSTEOPENIA
     Dosage: 70 mg, qw
     Route: 048
     Dates: start: 20010314, end: 20080114
  3. FOSAMAX [Suspect]
     Dosage: 70 mg, qw
     Dates: start: 20040113, end: 20080312
  4. FOSAMAX [Suspect]
     Indication: OSTEOPOROSIS POSTMENOPAUSAL
     Dosage: 70 mg, UNK
     Route: 048
     Dates: start: 20080312, end: 20110314
  5. PREMPRO [Concomitant]
     Indication: HORMONE REPLACEMENT THERAPY
  6. CALCIUM (UNSPECIFIED) [Concomitant]
     Indication: OSTEOPOROSIS POSTMENOPAUSAL
     Dosage: 1500 mg, qd
     Route: 048
  7. VITAMIN D (UNSPECIFIED) [Concomitant]
     Indication: OSTEOPOROSIS POSTMENOPAUSAL
     Dosage: 400 IU, qd
     Route: 048
  8. ATENOLOL [Concomitant]
     Indication: HYPERTENSION
     Dosage: UNK
     Dates: start: 2004, end: 2011
  9. HYDRALAZINE [Concomitant]
     Indication: BLOOD PRESSURE
  10. ISOSORBIDE [Concomitant]
     Indication: BLOOD PRESSURE
  11. VERAPAMIL [Concomitant]
     Indication: HYPERTENSION
  12. NASONEX [Concomitant]
     Indication: HYPERSENSITIVITY

REACTIONS (59)
  - Femur fracture [Recovered/Resolved with Sequelae]
  - Multiple sclerosis [Unknown]
  - Groin pain [Recovered/Resolved]
  - Fall [Unknown]
  - Fall [Unknown]
  - Rib fracture [Unknown]
  - Tooth abscess [Unknown]
  - Anxiety [Recovered/Resolved]
  - Low turnover osteopathy [Unknown]
  - Fractured sacrum [Recovered/Resolved]
  - Radiculopathy [Unknown]
  - Vertebral foraminal stenosis [Unknown]
  - Osteoarthritis [Unknown]
  - Cystocele [Unknown]
  - Uterine prolapse [Unknown]
  - Rectocele [Unknown]
  - Intervertebral disc degeneration [Unknown]
  - Osteoarthritis [Unknown]
  - Chondrocalcinosis [Unknown]
  - Drug intolerance [Unknown]
  - Skin disorder [Unknown]
  - Arrhythmia [Unknown]
  - Bacterial infection [Unknown]
  - Fungal infection [Unknown]
  - Blood cholesterol [Unknown]
  - Intraocular pressure test abnormal [Unknown]
  - Eye infection [Unknown]
  - Eye infection [Unknown]
  - Urinary tract infection [Unknown]
  - Rheumatoid arthritis [Unknown]
  - Cataract [Unknown]
  - Eye infection [Unknown]
  - Nausea [Unknown]
  - Back pain [Unknown]
  - Musculoskeletal pain [Unknown]
  - Dizziness [Unknown]
  - Musculoskeletal discomfort [Unknown]
  - Gastrooesophageal reflux disease [Unknown]
  - Syncope [Unknown]
  - Cough [Unknown]
  - Diarrhoea [Unknown]
  - Myalgia [Unknown]
  - Drug hypersensitivity [Unknown]
  - Drug hypersensitivity [Unknown]
  - Hyperlipidaemia [Unknown]
  - Drug hypersensitivity [Unknown]
  - Fibrocystic breast disease [Unknown]
  - Spinal osteoarthritis [Unknown]
  - Supraventricular tachycardia [Unknown]
  - Colitis microscopic [Unknown]
  - Gastritis [Unknown]
  - Peptic ulcer [Unknown]
  - Diverticulum [Unknown]
  - Coronary artery disease [Unknown]
  - Oesophagitis [Unknown]
  - Intramedullary rod insertion [Recovered/Resolved with Sequelae]
  - Visual acuity reduced [Unknown]
  - Fall [Unknown]
  - Laceration [Unknown]
